FAERS Safety Report 21087262 (Version 3)
Quarter: 2022Q3

REPORT INFORMATION
  Report Type: Spontaneous
  Country: HU (occurrence: HU)
  Receive Date: 20220715
  Receipt Date: 20220818
  Transmission Date: 20221026
  Serious: Yes (Hospitalization, Other)
  Sender: FDA-Public Use
  Company Number: HU-002147023-NVSC2022HU132529

PATIENT
  Age: 65 Year
  Sex: Female

DRUGS (30)
  1. CIPROFLOXACIN [Suspect]
     Active Substance: CIPROFLOXACIN
     Indication: Bacteriuria
     Dosage: 500 MG, BID
  2. TRAMADOL [Suspect]
     Active Substance: TRAMADOL
     Indication: Analgesic therapy
     Dosage: 50 MG, PRN (AS NEEDED)
  3. DICLOFENAC [Suspect]
     Active Substance: DICLOFENAC
     Indication: Pain
     Dosage: 50 MG
  4. FENTANYL [Suspect]
     Active Substance: FENTANYL
     Indication: Product used for unknown indication
     Dosage: UNK
  5. PREGABALIN [Suspect]
     Active Substance: PREGABALIN
     Indication: Product used for unknown indication
     Dosage: 75 MG, BID (FOR ONE WEEK)
  6. PREGABALIN [Suspect]
     Active Substance: PREGABALIN
     Indication: Product used for unknown indication
     Dosage: 75 MG, BID (FOR ONE WEEK)
  7. TEGRETOL XR [Suspect]
     Active Substance: CARBAMAZEPINE
     Indication: Pain
     Dosage: 200 MG, QD (FOR ONE WEEK)
     Dates: start: 20211230, end: 20220103
  8. TEGRETOL XR [Suspect]
     Active Substance: CARBAMAZEPINE
     Indication: Pain
     Dosage: 300 MG
     Dates: start: 20220113, end: 20220203
  9. PANTOPRAZOLE [Suspect]
     Active Substance: PANTOPRAZOLE
     Indication: Product used for unknown indication
     Dosage: 40 MG
  10. PACLITAXEL [Suspect]
     Active Substance: PACLITAXEL
     Indication: Breast cancer metastatic
     Dosage: 300 MG
     Dates: start: 20220113, end: 20220203
  11. AMLODIPINE [Suspect]
     Active Substance: AMLODIPINE BESYLATE
     Indication: Hypertension
     Dosage: UNK
     Dates: start: 202202
  12. CONTROLOC [Concomitant]
     Active Substance: PANTOPRAZOLE SODIUM
     Indication: Product used for unknown indication
     Dosage: 40 MG, QD
  13. ENOXAPARIN SODIUM [Concomitant]
     Active Substance: ENOXAPARIN SODIUM
     Indication: Product used for unknown indication
     Dosage: 6000 IU
  14. CHLOROPYRAMINE HYDROCHLORIDE [Concomitant]
     Active Substance: CHLOROPYRAMINE HYDROCHLORIDE
     Indication: Product used for unknown indication
     Dosage: UNK UNK, QD
  15. CHLOROPYRAMINE HYDROCHLORIDE [Concomitant]
     Active Substance: CHLOROPYRAMINE HYDROCHLORIDE
     Indication: Product used for unknown indication
     Dosage: UNK, QD
  16. CHLOROPYRAMINE HYDROCHLORIDE [Concomitant]
     Active Substance: CHLOROPYRAMINE HYDROCHLORIDE
     Indication: Product used for unknown indication
     Dosage: UNK, QD
  17. CHLOROPYRAMINE HYDROCHLORIDE [Concomitant]
     Active Substance: CHLOROPYRAMINE HYDROCHLORIDE
     Indication: Product used for unknown indication
     Dosage: UNK, QD
  18. FAMOTIDINE [Concomitant]
     Active Substance: FAMOTIDINE
     Indication: Product used for unknown indication
     Dosage: 40 MG
  19. FENTANYL [Concomitant]
     Active Substance: FENTANYL
     Indication: Product used for unknown indication
     Dosage: 100 DF
  20. FENTANYL [Concomitant]
     Active Substance: FENTANYL
     Indication: Product used for unknown indication
     Dosage: 100 (PATCHES)
  21. FENTANYL [Concomitant]
     Active Substance: FENTANYL
     Indication: Product used for unknown indication
     Dosage: 100 (PATCHES)
  22. FENTANYL [Concomitant]
     Active Substance: FENTANYL
     Indication: Product used for unknown indication
     Dosage: UNK, 100 (PATCHES)
  23. VITAMIN D3 [Concomitant]
     Active Substance: CHOLECALCIFEROL
     Indication: Product used for unknown indication
     Dosage: 3000 IU
  24. VITAMIN D3 [Concomitant]
     Active Substance: CHOLECALCIFEROL
     Indication: Product used for unknown indication
     Dosage: UNK
  25. CALCIUM [Concomitant]
     Active Substance: CALCIUM
     Indication: Product used for unknown indication
     Dosage: 500 MG
  26. GEMCITABINE\GEMCITABINE HYDROCHLORIDE [Concomitant]
     Active Substance: GEMCITABINE\GEMCITABINE HYDROCHLORIDE
     Indication: Product used for unknown indication
     Dosage: 2000 MG
     Dates: start: 20220210, end: 20220217
  27. LEVOTHYROXINE SODIUM [Concomitant]
     Active Substance: LEVOTHYROXINE SODIUM
     Indication: Product used for unknown indication
     Dosage: UNK
  28. LEVOTHYROXINE SODIUM [Concomitant]
     Active Substance: LEVOTHYROXINE SODIUM
     Indication: Product used for unknown indication
     Dosage: UNK
  29. XGEVA [Concomitant]
     Active Substance: DENOSUMAB
     Indication: Product used for unknown indication
     Dosage: UNK UNK, QMO
     Dates: start: 20211230
  30. GEMCITABINE [Concomitant]
     Active Substance: GEMCITABINE
     Indication: Product used for unknown indication
     Dosage: 2000 MG
     Dates: start: 20220210, end: 20220217

REACTIONS (38)
  - Body temperature increased [Unknown]
  - Decreased appetite [Unknown]
  - Cranial nerve disorder [Unknown]
  - Paraesthesia oral [Recovered/Resolved]
  - Malaise [Unknown]
  - Musculoskeletal chest pain [Unknown]
  - Metastases to meninges [Unknown]
  - Diarrhoea [Recovered/Resolved]
  - C-reactive protein increased [Unknown]
  - Erythema [Unknown]
  - Hot flush [Unknown]
  - Kidney enlargement [Unknown]
  - Nausea [Unknown]
  - Vomiting [Unknown]
  - Epistaxis [Unknown]
  - Hypothyroidism [Unknown]
  - Bacteriuria [Unknown]
  - Off label use [Unknown]
  - Hepatic enzyme increased [Unknown]
  - Pain [Unknown]
  - Hyperhidrosis [Unknown]
  - Tremor [Unknown]
  - Nasopharyngitis [Recovering/Resolving]
  - Umbilical hernia [Unknown]
  - Lymphoedema [Unknown]
  - Lip swelling [Recovered/Resolved]
  - Drug ineffective [Unknown]
  - Carbohydrate antigen 15-3 increased [Unknown]
  - Vaginal haemorrhage [Unknown]
  - Hypoaesthesia [Unknown]
  - Urine odour abnormal [Recovered/Resolved]
  - Blood pressure increased [Unknown]
  - Carcinoembryonic antigen increased [Unknown]
  - Thyroid mass [Unknown]
  - Hepatic steatosis [Unknown]
  - Headache [Unknown]
  - Product use in unapproved indication [None]
  - Right ventricular dilatation [Unknown]

NARRATIVE: CASE EVENT DATE: 20220101
